FAERS Safety Report 9939421 (Version 1)
Quarter: 2014Q1

REPORT INFORMATION
  Report Type: Report from Study
  Country: US (occurrence: US)
  Receive Date: 20140303
  Receipt Date: 20140303
  Transmission Date: 20141002
  Serious: No
  Sender: FDA-Public Use
  Company Number: US-ABBVIE-13P-163-1033481-00

PATIENT
  Age: 65 Year
  Sex: Female

DRUGS (15)
  1. HUMIRA [Suspect]
     Indication: CROHN^S DISEASE
     Dates: start: 20121025, end: 20121216
  2. HUMIRA [Suspect]
  3. EVISTA [Concomitant]
     Indication: OSTEOPOROSIS
     Dosage: 60MG DAILY
  4. PAROXETINE HCL [Concomitant]
     Indication: PRODUCT USED FOR UNKNOWN INDICATION
     Dosage: 2 DAILY
  5. SIMVASTATIN [Concomitant]
     Indication: BLOOD CHOLESTEROL
     Dosage: 20MG DAILY
  6. CALCIUM [Concomitant]
     Indication: MINERAL SUPPLEMENTATION
  7. VIT D3 [Concomitant]
     Indication: VITAMIN SUPPLEMENTATION
  8. B12 [Concomitant]
     Indication: VITAMIN SUPPLEMENTATION
  9. OMEPRAZOLE [Concomitant]
     Indication: GASTROOESOPHAGEAL REFLUX DISEASE
     Dosage: ONE DAILY
  10. PEPCID AC [Concomitant]
     Indication: GASTROOESOPHAGEAL REFLUX DISEASE
     Dosage: ONE DAILY
  11. GLUCOSAMINE [Concomitant]
     Indication: OSTEOPOROSIS
     Dosage: ONE DAILY
  12. COENZYME Q10 [Concomitant]
     Indication: VITAMIN SUPPLEMENTATION
     Dosage: DAILY
  13. ALLEGRA [Concomitant]
     Indication: SINUS CONGESTION
     Dosage: 180MG DAILY
  14. B12 [Concomitant]
     Indication: PRODUCT USED FOR UNKNOWN INDICATION
     Dosage: MONTHLY
  15. LOMOTIL [Concomitant]
     Indication: DIARRHOEA

REACTIONS (2)
  - Aphonia [Recovered/Resolved]
  - Sinusitis [Recovered/Resolved]
